FAERS Safety Report 5806588-8 (Version None)
Quarter: 2008Q3

REPORT INFORMATION
  Report Type: 
  Country: None (occurrence: None)
  Receive Date: 20080710
  Receipt Date: 20080630
  Transmission Date: 20090109
  Serious: Yes (Disabling)
  Sender: FDA-Public Use
  Company Number: PHEH2008US05099

PATIENT
  Sex: Female

DRUGS (1)
  1. AREDIA [Suspect]
     Indication: MULTIPLE MYELOMA
     Dosage: 90 MG QMONTH
     Route: 042
     Dates: start: 19970601, end: 20010701

REACTIONS (3)
  - BONE DISORDER [None]
  - JAW OPERATION [None]
  - PAIN [None]
